FAERS Safety Report 23050638 (Version 1)
Quarter: 2023Q4

REPORT INFORMATION
  Report Type: Spontaneous
  Country: US (occurrence: US)
  Receive Date: 20231010
  Receipt Date: 20231010
  Transmission Date: 20240110
  Serious: Yes (Hospitalization, Other)
  Sender: FDA-Public Use
  Company Number: US-SUN PHARMACEUTICAL INDUSTRIES LTD-2023R1-411463

PATIENT
  Age: 35 Year
  Sex: Male

DRUGS (5)
  1. HALOPERIDOL [Suspect]
     Active Substance: HALOPERIDOL
     Indication: Product used for unknown indication
     Dosage: 200 MILLIGRAM
     Route: 030
  2. RISPERIDONE [Suspect]
     Active Substance: RISPERIDONE
     Indication: Product used for unknown indication
     Dosage: 6 MILLIGRAM, DAILY
     Route: 048
  3. RISPERIDONE [Suspect]
     Active Substance: RISPERIDONE
     Dosage: 1 MILLIGRAM, BID
     Route: 048
  4. VALPROIC ACID [Suspect]
     Active Substance: VALPROIC ACID
     Indication: Product used for unknown indication
     Dosage: 750 MILLIGRAM, BID
     Route: 048
  5. VALPROIC ACID [Suspect]
     Active Substance: VALPROIC ACID
     Dosage: 500 MILLIGRAM, BID
     Route: 048

REACTIONS (2)
  - Extrapyramidal disorder [Recovering/Resolving]
  - Catatonia [Recovering/Resolving]
